FAERS Safety Report 11892928 (Version 1)
Quarter: 2016Q1

REPORT INFORMATION
  Report Type: Spontaneous
  Country: GB (occurrence: GB)
  Receive Date: 20160106
  Receipt Date: 20160106
  Transmission Date: 20160526
  Serious: Yes (Hospitalization)
  Sender: FDA-Public Use
  Company Number: GB-ASTRAZENECA-2016SE00240

PATIENT
  Age: 69 Year
  Sex: Female

DRUGS (15)
  1. FELODIPINE. [Concomitant]
     Active Substance: FELODIPINE
  2. AMITRIPTYLINE [Concomitant]
     Active Substance: AMITRIPTYLINE
  3. ATENOLOL. [Concomitant]
     Active Substance: ATENOLOL
  4. INDAPAMIDE. [Interacting]
     Active Substance: INDAPAMIDE
     Route: 065
     Dates: end: 20151218
  5. LOSARTAN. [Interacting]
     Active Substance: LOSARTAN
     Route: 065
     Dates: end: 20151218
  6. BETAHISTINE [Concomitant]
     Active Substance: BETAHISTINE
  7. SERTRALINE [Interacting]
     Active Substance: SERTRALINE HYDROCHLORIDE
     Indication: DEPRESSION
     Route: 048
     Dates: start: 20151123, end: 20151218
  8. ROSUVASTATIN [Concomitant]
     Active Substance: ROSUVASTATIN
  9. ADCAL-D3 [Concomitant]
     Active Substance: CALCIUM CARBONATE\CHOLECALCIFEROL
  10. LEVOTHYROXINE. [Concomitant]
     Active Substance: LEVOTHYROXINE
  11. ASPIRIN. [Concomitant]
     Active Substance: ASPIRIN
  12. METFORMIN [Concomitant]
     Active Substance: METFORMIN HYDROCHLORIDE
  13. OMEPRAZOLE. [Suspect]
     Active Substance: OMEPRAZOLE
     Route: 048
     Dates: end: 20151218
  14. FERROUS SULFATE [Concomitant]
     Active Substance: FERROUS SULFATE\FERROUS SULFATE, DRIED
  15. GLICLAZIDE [Concomitant]
     Active Substance: GLICLAZIDE

REACTIONS (4)
  - Confusional state [Unknown]
  - Drug interaction [Unknown]
  - Malaise [Unknown]
  - Hyponatraemia [Recovering/Resolving]

NARRATIVE: CASE EVENT DATE: 20151217
